FAERS Safety Report 8002062-1 (Version None)
Quarter: 2011Q4

REPORT INFORMATION
  Report Type: 
  Country: None (occurrence: None)
  Receive Date: 20111222
  Receipt Date: 20111215
  Transmission Date: 20120403
  Serious: Yes (Other)
  Sender: FDA-Public Use
  Company Number: PHHY2011US109344

PATIENT
  Age: 52 Year
  Sex: Male

DRUGS (3)
  1. TACROLIMUS [Suspect]
  2. MYCOPHENOLATE MOFETIL [Suspect]
  3. PREDNISONE TAB [Suspect]

REACTIONS (4)
  - HAEMATURIA [None]
  - MUIR-TORRE SYNDROME [None]
  - SEBACEOUS ADENOMA [None]
  - DYSPLASIA [None]
